FAERS Safety Report 5524318-4 (Version None)
Quarter: 2007Q4

REPORT INFORMATION
  Report Type: 
  Country: None (occurrence: None)
  Receive Date: 20071121
  Receipt Date: 20071113
  Transmission Date: 20080405
  Serious: Yes (Other)
  Sender: FDA-Public Use
  Company Number: US-PFIZER INC-2007095584

PATIENT
  Sex: Male

DRUGS (4)
  1. LYRICA [Suspect]
     Indication: EPILEPSY
  2. LAMICTAL [Concomitant]
  3. TOPAMAX [Concomitant]
  4. KEPPRA [Concomitant]

REACTIONS (2)
  - CONVULSION [None]
  - ENCEPHALOPATHY [None]
